FAERS Safety Report 24392545 (Version 1)
Quarter: 2024Q4

REPORT INFORMATION
  Report Type: Spontaneous
  Country: US (occurrence: US)
  Receive Date: 20241003
  Receipt Date: 20241003
  Transmission Date: 20250115
  Serious: Yes (Death)
  Sender: TEVA
  Company Number: US-TEVA-VS-3249568

PATIENT
  Age: 65 Year
  Sex: Female

DRUGS (1)
  1. AUSTEDO [Suspect]
     Active Substance: DEUTETRABENAZINE
     Indication: Product used for unknown indication
     Route: 065
     Dates: start: 20240406, end: 20240924

REACTIONS (1)
  - Death [Fatal]
